FAERS Safety Report 6835742-1 (Version None)
Quarter: 2010Q3

REPORT INFORMATION
  Report Type: 
  Country: None (occurrence: None)
  Receive Date: 20100712
  Receipt Date: 20100712
  Transmission Date: 20110219
  Serious: No
  Sender: FDA-Public Use
  Company Number: None

PATIENT
  Age: 43 Year
  Sex: Male
  Weight: 79.3795 kg

DRUGS (3)
  1. XANAX [Suspect]
     Indication: ANGER
     Dosage: ONE NUMBER TEN TWO HRS. PO
     Route: 048
     Dates: start: 20100629, end: 20100704
  2. XANAX [Suspect]
     Indication: ANXIETY
     Dosage: ONE NUMBER TEN TWO HRS. PO
     Route: 048
     Dates: start: 20100629, end: 20100704
  3. XANAX [Suspect]

REACTIONS (2)
  - DYSGEUSIA [None]
  - NAUSEA [None]
